FAERS Safety Report 22598338 (Version 1)
Quarter: 2023Q2

REPORT INFORMATION
  Report Type: Report from Study
  Country: CN (occurrence: CN)
  Receive Date: 20230614
  Receipt Date: 20230614
  Transmission Date: 20230721
  Serious: Yes (Hospitalization)
  Sender: FDA-Public Use
  Company Number: CN-TAKEDA-2021TUS060213

PATIENT
  Age: 58 Year
  Sex: Male
  Weight: 71 kg

DRUGS (17)
  1. PEMETREXED [Suspect]
     Active Substance: PEMETREXED
     Indication: Non-small cell lung cancer
     Dosage: 500 MILLIGRAM/SQ. METER
     Route: 042
     Dates: start: 20201124
  2. CISPLATIN [Suspect]
     Active Substance: CISPLATIN
     Indication: Non-small cell lung cancer
     Dosage: 75 MILLIGRAM/SQ. METER
     Route: 042
     Dates: start: 20201124
  3. CISPLATIN [Suspect]
     Active Substance: CISPLATIN
     Dosage: 60 MILLIGRAM/SQ. METER
     Route: 042
     Dates: start: 20210127
  4. DEXAMETHASONE ACETATE [Concomitant]
     Active Substance: DEXAMETHASONE ACETATE
     Indication: Allergy prophylaxis
     Dosage: 3.75 MILLIGRAM, BID
     Route: 048
     Dates: start: 20210826, end: 20210828
  5. NIFEDIPINE [Concomitant]
     Active Substance: NIFEDIPINE
     Dosage: 10 MILLIGRAM, QD
     Route: 048
     Dates: start: 201805
  6. METFORMIN HYDROCHLORIDE [Concomitant]
     Active Substance: METFORMIN HYDROCHLORIDE
     Indication: Diabetes mellitus
     Dosage: 0.5 GRAM
     Route: 048
     Dates: start: 202008
  7. OMEPRAZOLE MAGNESIUM [Concomitant]
     Active Substance: OMEPRAZOLE MAGNESIUM
     Indication: Gastrooesophageal reflux disease
     Dosage: 20 MILLIGRAM, QD
     Route: 048
     Dates: start: 20210729, end: 20210824
  8. IBUPROFEN [Concomitant]
     Active Substance: IBUPROFEN
     Indication: Upper respiratory tract infection
     Dosage: 0.4 GRAM, BID
     Route: 048
     Dates: start: 20210916, end: 20210922
  9. IBUPROFEN [Concomitant]
     Active Substance: IBUPROFEN
     Indication: Pyrexia
  10. TROPISETRON HYDROCHLORIDE [Concomitant]
     Active Substance: TROPISETRON HYDROCHLORIDE
     Indication: Prophylaxis of nausea and vomiting
     Dosage: 5 MILLIGRAM, QD
     Route: 041
     Dates: start: 20210827, end: 20210827
  11. IRBESARTAN [Concomitant]
     Active Substance: IRBESARTAN
     Indication: Blood pressure decreased
     Dosage: 0.3 GRAM, BID
     Route: 048
     Dates: start: 20210810
  12. ACETAMINOPHEN [Concomitant]
     Active Substance: ACETAMINOPHEN
     Indication: Upper respiratory tract infection
     Dosage: 0.5 GRAM, BID
     Route: 048
     Dates: start: 20210916, end: 20210922
  13. ACETAMINOPHEN [Concomitant]
     Active Substance: ACETAMINOPHEN
     Indication: Pyrexia
  14. AZITHROMYCIN [Concomitant]
     Active Substance: AZITHROMYCIN
     Indication: Upper respiratory tract infection
     Dosage: 0.5 GRAM, BID
     Route: 048
     Dates: start: 20210916, end: 20210922
  15. AZITHROMYCIN [Concomitant]
     Active Substance: AZITHROMYCIN
     Indication: Pyrexia
  16. HERBALS\DIAMMONIUM GLYCYRRHIZINATE [Concomitant]
     Active Substance: HERBALS\DIAMMONIUM GLYCYRRHIZINATE
     Indication: Alanine aminotransferase increased
     Dosage: 150 MILLIGRAM, TID
     Route: 048
     Dates: start: 20210828, end: 20210910
  17. VITAMINS [Concomitant]
     Active Substance: VITAMINS
     Indication: Vitamin supplementation
     Dosage: UNK UNK, QD
     Route: 048
     Dates: start: 20201124, end: 20210930

REACTIONS (1)
  - Gastritis [Recovered/Resolved]

NARRATIVE: CASE EVENT DATE: 20210924
